FAERS Safety Report 23422582 (Version 2)
Quarter: 2024Q1

REPORT INFORMATION
  Report Type: Spontaneous
  Country: JP (occurrence: JP)
  Receive Date: 20240119
  Receipt Date: 20240219
  Transmission Date: 20240409
  Serious: Yes (Death)
  Sender: FDA-Public Use
  Company Number: JP-NBI-BJ202321427

PATIENT
  Age: 9 Decade
  Sex: Male

DRUGS (1)
  1. MIRAPEX [Suspect]
     Active Substance: PRAMIPEXOLE DIHYDROCHLORIDE
     Indication: Parkinson^s disease
     Route: 048

REACTIONS (2)
  - Death [Fatal]
  - Manufacturing product shipping issue [Unknown]

NARRATIVE: CASE EVENT DATE: 20231201
